FAERS Safety Report 5513663-4 (Version None)
Quarter: 2007Q4

REPORT INFORMATION
  Report Type: 
  Country: None (occurrence: None)
  Receive Date: 20071112
  Receipt Date: 20071017
  Transmission Date: 20080405
  Serious: No
  Sender: FDA-Public Use
  Company Number: US-BOEHRINGER INGELHEIM PHARMACEUTICALS, INC.-2007-BP-22917BP

PATIENT
  Age: 82 Year
  Sex: Male

DRUGS (8)
  1. SPIRIVA [Suspect]
     Indication: CHRONIC OBSTRUCTIVE PULMONARY DISEASE
     Route: 055
     Dates: start: 20070917
  2. ALBUTEROL [Concomitant]
  3. BENAZEPRIL HYDROCHLORIDE [Concomitant]
  4. CELEXA [Concomitant]
  5. FORADIL [Concomitant]
  6. ASMANEX TWISTHALER [Concomitant]
  7. PRAZOSIN HCL [Concomitant]
  8. GUAIFENESIN [Concomitant]

REACTIONS (1)
  - BRADYCARDIA [None]
